FAERS Safety Report 11650775 (Version 1)
Quarter: 2015Q4

REPORT INFORMATION
  Report Type: Spontaneous
  Country: US (occurrence: US)
  Receive Date: 20151021
  Receipt Date: 20151021
  Transmission Date: 20160304
  Serious: No
  Sender: FDA-Public Use
  Company Number: US-TAKEDA-2015TUS014499

PATIENT

DRUGS (1)
  1. BRINTELLIX [Suspect]
     Active Substance: VORTIOXETINE HYDROBROMIDE
     Indication: BIPOLAR II DISORDER
     Dosage: UNK, QD
     Route: 048

REACTIONS (3)
  - Off label use [Unknown]
  - No adverse event [Unknown]
  - Therapeutic response unexpected [Unknown]
